FAERS Safety Report 18904875 (Version 1)
Quarter: 2021Q1

REPORT INFORMATION
  Report Type: Spontaneous
  Country: US (occurrence: US)
  Receive Date: 20210216
  Receipt Date: 20210216
  Transmission Date: 20210420
  Serious: Yes (Hospitalization)
  Sender: FDA-Public Use
  Company Number: None

PATIENT

DRUGS (21)
  1. DEXAMETHASONE. [Concomitant]
     Active Substance: DEXAMETHASONE
  2. PROCHLORPERAZINE. [Concomitant]
     Active Substance: PROCHLORPERAZINE
  3. TRAZODONE [Concomitant]
     Active Substance: TRAZODONE HYDROCHLORIDE
  4. ALLOPURINOL. [Concomitant]
     Active Substance: ALLOPURINOL
  5. ASPIRIN. [Concomitant]
     Active Substance: ASPIRIN
  6. VELCADE [Suspect]
     Active Substance: BORTEZOMIB
  7. ACYCLOVIR. [Concomitant]
     Active Substance: ACYCLOVIR
  8. FETZIMA [Concomitant]
     Active Substance: LEVOMILNACIPRAN HYDROCHLORIDE
  9. ONDANSETRON [Concomitant]
     Active Substance: ONDANSETRON
  10. OXYCODONE [Concomitant]
     Active Substance: OXYCODONE
  11. OXYCODONE [Concomitant]
     Active Substance: OXYCODONE
  12. TAMSULOSIN [Concomitant]
     Active Substance: TAMSULOSIN
  13. LENALIDOMIDE [Suspect]
     Active Substance: LENALIDOMIDE
  14. ASCORBIC ACID. [Concomitant]
     Active Substance: ASCORBIC ACID
  15. LEVOTHYROXINE. [Concomitant]
     Active Substance: LEVOTHYROXINE
  16. MELOXICAM. [Concomitant]
     Active Substance: MELOXICAM
  17. NYSTATIN. [Concomitant]
     Active Substance: NYSTATIN
  18. OMEPRAZOLE. [Concomitant]
     Active Substance: OMEPRAZOLE
  19. MULTIPLE VITAMIN (MULTIVITAMIN) [Concomitant]
  20. PYRIDOXINE HC1 [Concomitant]
  21. CALCIUM CARB?CHOLECALCIFEROL [Concomitant]

REACTIONS (9)
  - Neutropenia [None]
  - Back pain [None]
  - Rash [None]
  - Streptococcus test positive [None]
  - Thrombocytopenia [None]
  - Injection site cellulitis [None]
  - Pyrexia [None]
  - Chills [None]
  - Spinal compression fracture [None]

NARRATIVE: CASE EVENT DATE: 20171116
